FAERS Safety Report 8540940-5 (Version None)
Quarter: 2012Q3

REPORT INFORMATION
  Report Type: 
  Country: None (occurrence: None)
  Receive Date: 20120726
  Receipt Date: 20110808
  Transmission Date: 20120928
  Serious: No
  Sender: FDA-Public Use
  Company Number: US-ASTRAZENECA-2011SE47412

PATIENT
  Age: 55 Year
  Sex: Female
  Weight: 124 kg

DRUGS (2)
  1. SEROQUEL [Suspect]
     Indication: DEPRESSION
     Route: 048
     Dates: start: 20100101
  2. SEROQUEL [Suspect]
     Indication: BIPOLAR DISORDER
     Route: 048
     Dates: start: 20100101

REACTIONS (4)
  - DRUG DOSE OMISSION [None]
  - INSOMNIA [None]
  - DRY MOUTH [None]
  - CONSTIPATION [None]
